FAERS Safety Report 4912488-8 (Version None)
Quarter: 2006Q1

REPORT INFORMATION
  Report Type: 
  Country: None (occurrence: None)
  Receive Date: 20060215
  Receipt Date: 20050511
  Transmission Date: 20060701
  Serious: No
  Sender: FDA-Public Use
  Company Number: US-GLAXOSMITHKLINE-A0558163A

PATIENT
  Age: 52 Year
  Sex: Female

DRUGS (3)
  1. VALACYCLOVIR HCL [Suspect]
     Dosage: 1000MG PER DAY
     Route: 048
     Dates: start: 20050401
  2. PENICILLIN [Concomitant]
  3. UNKNOWN ANTIBIOTIC [Concomitant]

REACTIONS (2)
  - GLOSSODYNIA [None]
  - TONGUE DISORDER [None]
